FAERS Safety Report 9128839 (Version 1)
Quarter: 2013Q1

REPORT INFORMATION
  Report Type: Spontaneous
  Country: US (occurrence: US)
  Receive Date: 20130125
  Receipt Date: 20130125
  Transmission Date: 20140127
  Serious: No
  Sender: FDA-Public Use
  Company Number: US-B.I. PHARMACEUTICALS,INC./RIDGEFIELD-2013-BI-02039BP

PATIENT
  Sex: Female

DRUGS (4)
  1. SPIRIVA [Suspect]
     Indication: CHRONIC OBSTRUCTIVE PULMONARY DISEASE
     Dosage: 18 MCG
     Route: 055
     Dates: start: 201201
  2. EYE DROPS [Concomitant]
     Indication: GLAUCOMA
  3. STATIN DRUG [Concomitant]
     Indication: BLOOD CHOLESTEROL INCREASED
     Route: 048
  4. PYRIDIUM [Concomitant]
     Route: 048

REACTIONS (1)
  - Bladder pain [Not Recovered/Not Resolved]
